FAERS Safety Report 9916066 (Version 2)
Quarter: 2014Q1

REPORT INFORMATION
  Report Type: Spontaneous
  Country: JP (occurrence: JP)
  Receive Date: 20140221
  Receipt Date: 20140310
  Transmission Date: 20141002
  Serious: Yes (Hospitalization, Other)
  Sender: FDA-Public Use
  Company Number: JP-009507513-1402JPN010390

PATIENT
  Sex: 0

DRUGS (8)
  1. REMERON [Suspect]
     Indication: DEPRESSION
     Dosage: DAILY DOSE UNKNOWN
     Route: 048
     Dates: end: 20140218
  2. MYSLEE [Suspect]
     Dosage: DAILY DOSE UNKNOWN
     Route: 048
     Dates: end: 20140218
  3. MUCODYNE [Concomitant]
     Dosage: DAILY DOSE UNKNOWN(FORMULATION:POR)
     Route: 048
  4. MAGMITT [Concomitant]
     Dosage: DAILY DOSE UNKNOWN(FORMULATION:POR)
     Route: 048
  5. GASMOTIN [Concomitant]
     Dosage: DAILY DOSE UNKNOWN(FORMULATION:POR)
     Route: 048
  6. TAKEPRON [Concomitant]
     Dosage: DAILY DOSE UNKNOWN
  7. HERBESSER [Concomitant]
     Dosage: DAILY DOSE UNKNOWN
     Route: 048
  8. BAYNAS [Concomitant]
     Dosage: DAILY DOSE UNKNOWN
     Route: 048

REACTIONS (3)
  - Loss of consciousness [Recovered/Resolved]
  - Depressed level of consciousness [Unknown]
  - Gaze palsy [Unknown]
